FAERS Safety Report 7265187-4 (Version None)
Quarter: 2011Q1

REPORT INFORMATION
  Report Type: 
  Country: None (occurrence: None)
  Receive Date: 20110131
  Receipt Date: 20110126
  Transmission Date: 20110831
  Serious: No
  Sender: FDA-Public Use
  Company Number: US-ROXANE LABORATORIES, INC.-2011-RO-00114RO

PATIENT
  Age: 78 Year
  Sex: Female

DRUGS (5)
  1. ENABLEX [Concomitant]
     Indication: INCONTINENCE
  2. PREGABALIN [Suspect]
     Indication: CONVULSION
     Dosage: 50 MG
     Route: 048
  3. SPIRONOLACTONE [Suspect]
     Indication: ATRIAL FIBRILLATION
     Dosage: 25 MG
     Route: 048
     Dates: start: 20100101
  4. DIGOXIN [Suspect]
     Indication: ATRIAL FIBRILLATION
     Dates: start: 20100101
  5. PREGABALIN [Suspect]
     Dosage: 100 MG
     Route: 048

REACTIONS (4)
  - ONYCHOCLASIS [None]
  - SOMNOLENCE [None]
  - ONYCHALGIA [None]
  - NAIL DISORDER [None]
